FAERS Safety Report 9879668 (Version 1)
Quarter: 2014Q1

REPORT INFORMATION
  Report Type: Report from Study
  Country: US (occurrence: US)
  Receive Date: 20140206
  Receipt Date: 20140206
  Transmission Date: 20141002
  Serious: Yes (Hospitalization)
  Sender: FDA-Public Use
  Company Number: US-ABBVIE-14P-163-1196230-00

PATIENT
  Age: 50 Year
  Sex: Female
  Weight: 53.12 kg

DRUGS (4)
  1. MARINOL [Suspect]
     Indication: PAIN
     Dosage: 1-2 CAPSULES EVERY 6 HOURS
     Route: 048
     Dates: start: 201106
  2. NEXIUM [Concomitant]
     Indication: PRODUCT USED FOR UNKNOWN INDICATION
  3. XANAX [Concomitant]
     Indication: PRODUCT USED FOR UNKNOWN INDICATION
  4. FLEXERIL [Concomitant]
     Indication: PRODUCT USED FOR UNKNOWN INDICATION

REACTIONS (4)
  - Pneumonia [Recovered/Resolved]
  - Influenza [Recovered/Resolved]
  - Dehydration [Not Recovered/Not Resolved]
  - Bronchitis [Recovered/Resolved]
